FAERS Safety Report 8862920 (Version 6)
Quarter: 2016Q3

REPORT INFORMATION
  Report Type: Report from Study
  Country: JP (occurrence: JP)
  Receive Date: 20121026
  Receipt Date: 20160823
  Transmission Date: 20161109
  Serious: Yes (Death)
  Sender: FDA-Public Use
  Company Number: JP-PFIZER INC-2012258063

PATIENT
  Age: 72 Year
  Sex: Female
  Weight: 34.3 kg

DRUGS (9)
  1. CYTOTEC [Concomitant]
     Active Substance: MISOPROSTOL
     Dosage: 100 UG, 2X/DAY
     Route: 048
     Dates: end: 20121017
  2. ADONA [Concomitant]
     Active Substance: CARBAZOCHROME SODIUM SULFONATE
     Dosage: 30 MG, 2X/DAY
     Route: 048
     Dates: end: 20121017
  3. XALKORI [Suspect]
     Active Substance: CRIZOTINIB
     Indication: NON-SMALL CELL LUNG CANCER
     Dosage: 250 MG, 2X/DAY
     Route: 048
     Dates: start: 20121006, end: 20121016
  4. PRIMPERAN [Concomitant]
     Active Substance: METOCLOPRAMIDE HYDROCHLORIDE
     Dosage: DAILY
     Dates: start: 20120929
  5. CODEINE PHOSPHATE [Concomitant]
     Active Substance: CODEINE PHOSPHATE
     Dosage: 5 MG, 2X/DAY
     Route: 048
     Dates: end: 20121017
  6. TRAMAL [Concomitant]
     Active Substance: TRAMADOL
     Dosage: 25 MG, 3X/DAY
     Route: 048
     Dates: end: 20121017
  7. LOXOPROFEN [Concomitant]
     Active Substance: LOXOPROFEN
     Dosage: 60 MG, 2X/DAY
     Route: 048
     Dates: end: 20121017
  8. MEDICON [Concomitant]
     Active Substance: DEXTROMETHORPHAN HYDROBROMIDE
     Dosage: 15 MG, 3X/DAY
     Route: 048
     Dates: end: 20121017
  9. DEXART [Concomitant]
     Active Substance: DEXAMETHASONE SODIUM PHOSPHATE
     Dosage: UNK
     Dates: start: 20121006, end: 20121010

REACTIONS (1)
  - Interstitial lung disease [Fatal]

NARRATIVE: CASE EVENT DATE: 20121016
